FAERS Safety Report 14984353 (Version 1)
Quarter: 2018Q2

REPORT INFORMATION
  Report Type: Report from Study
  Country: FR (occurrence: FR)
  Receive Date: 20180607
  Receipt Date: 20180607
  Transmission Date: 20180711
  Serious: Yes (Life-Threatening, Other)
  Sender: FDA-Public Use
  Company Number: FR-JAZZ-2017-FR-016600

PATIENT

DRUGS (4)
  1. DEFITELIO [Suspect]
     Active Substance: DEFIBROTIDE SODIUM
     Indication: PROPHYLAXIS
     Dosage: 24 MG/KG, QD
     Dates: start: 20171024, end: 20171114
  2. MERONEM [Concomitant]
     Active Substance: MEROPENEM
  3. PYRIMETHAMINE [Concomitant]
     Active Substance: PYRIMETHAMINE
  4. ADIAZINE [Concomitant]
     Active Substance: SULFADIAZINE

REACTIONS (2)
  - Toxoplasmosis [Recovered/Resolved]
  - Klebsiella infection [Recovered/Resolved]

NARRATIVE: CASE EVENT DATE: 20171101
